FAERS Safety Report 13985735 (Version 1)
Quarter: 2017Q3

REPORT INFORMATION
  Report Type: Spontaneous
  Country: US (occurrence: US)
  Receive Date: 20170919
  Receipt Date: 20170919
  Transmission Date: 20171128
  Serious: No
  Sender: FDA-Public Use
  Company Number: US-009507513-1709USA007856

PATIENT
  Age: 18 Year
  Sex: Female
  Weight: 47.62 kg

DRUGS (1)
  1. NEXPLANON [Suspect]
     Active Substance: ETONOGESTREL
     Indication: CONTRACEPTION
     Dosage: 68MG / ONE ROD PER 3 YEARS
     Route: 059
     Dates: start: 20170630

REACTIONS (3)
  - Acne [Not Recovered/Not Resolved]
  - Weight decreased [Not Recovered/Not Resolved]
  - Menorrhagia [Unknown]

NARRATIVE: CASE EVENT DATE: 201707
